FAERS Safety Report 9826249 (Version 2)
Quarter: 2014Q2

REPORT INFORMATION
  Report Type: Spontaneous
  Country: US (occurrence: US)
  Receive Date: 20140117
  Receipt Date: 20140509
  Transmission Date: 20141212
  Serious: No
  Sender: FDA-Public Use
  Company Number: US-009507513-1401USA006328

PATIENT
  Sex: Female
  Weight: 79.37 kg

DRUGS (5)
  1. MIRALAX [Suspect]
     Indication: CONSTIPATION
     Dosage: UNK, QAM
     Route: 048
     Dates: start: 20130924, end: 20131125
  2. HYDROCHLOROTHIAZIDE [Concomitant]
     Indication: HYPERTENSION
     Dosage: UNK, UNKNOWN
  3. LISINOPRIL [Concomitant]
     Indication: HYPERTENSION
     Dosage: UNK, UNKNOWN
  4. CALCIUM (UNSPECIFIED) [Concomitant]
     Indication: OSTEOPOROSIS
     Dosage: UNK, UNKNOWN
  5. OCUVITE PRESERVISION [Concomitant]
     Indication: MACULAR DEGENERATION
     Dosage: UNK, UNKNOWN

REACTIONS (2)
  - Peripheral swelling [Recovered/Resolved]
  - Circumstance or information capable of leading to medication error [Unknown]
